FAERS Safety Report 9714138 (Version 1)
Quarter: 2013Q4

REPORT INFORMATION
  Report Type: Spontaneous
  Country: US (occurrence: US)
  Receive Date: 20131126
  Receipt Date: 20131126
  Transmission Date: 20140711
  Serious: No
  Sender: FDA-Public Use
  Company Number: US-GILEAD-2008-0018845

PATIENT
  Sex: Male
  Weight: 44.91 kg

DRUGS (11)
  1. LETAIRIS [Suspect]
     Indication: PULMONARY ARTERIAL HYPERTENSION
     Route: 048
     Dates: start: 20070808
  2. COUMADIN [Concomitant]
  3. VIAGRA [Concomitant]
  4. VENTAVIS [Concomitant]
  5. XANAX [Concomitant]
  6. XOPENEX [Concomitant]
  7. SOTALOL [Concomitant]
  8. IBUPROFEN [Concomitant]
  9. STRATTERA [Concomitant]
  10. ENALAPRIL [Concomitant]
  11. ZOLOFT [Concomitant]

REACTIONS (2)
  - Disturbance in attention [Unknown]
  - Blood pressure decreased [Unknown]
